FAERS Safety Report 8396592-0 (Version None)
Quarter: 2012Q2

REPORT INFORMATION
  Report Type: 
  Country: None (occurrence: None)
  Receive Date: 20120530
  Receipt Date: 20120524
  Transmission Date: 20120825
  Serious: Yes (Congenital Anomaly, Other)
  Sender: FDA-Public Use
  Company Number: US-JNJFOC-20120507921

PATIENT
  Sex: Female
  Weight: 2.72 kg

DRUGS (4)
  1. TOPAMAX [Suspect]
     Indication: FOETAL EXPOSURE DURING PREGNANCY
     Route: 015
     Dates: end: 20090715
  2. TOPAMAX [Suspect]
     Route: 015
     Dates: start: 20090715, end: 20090915
  3. TOPIRAMATE [Suspect]
     Route: 015
     Dates: start: 20091205, end: 20100310
  4. TOPIRAMATE [Suspect]
     Indication: FOETAL EXPOSURE DURING PREGNANCY
     Route: 015
     Dates: start: 20090915, end: 20091205

REACTIONS (1)
  - LARYNGEAL CLEFT [None]
